FAERS Safety Report 6605064-2 (Version None)
Quarter: 2010Q1

REPORT INFORMATION
  Report Type: 
  Country: None (occurrence: None)
  Receive Date: 20100226
  Receipt Date: 20100215
  Transmission Date: 20100710
  Serious: Yes (Disabling)
  Sender: FDA-Public Use
  Company Number: GB-ELI_LILLY_AND_COMPANY-GB201002003876

PATIENT
  Age: 65 Year
  Sex: Male

DRUGS (4)
  1. BYETTA [Suspect]
     Dosage: 5 UG, UNK
     Route: 058
     Dates: start: 20091026
  2. TRIMETHOPRIM [Concomitant]
     Route: 048
  3. LEVEMIR [Concomitant]
     Indication: DIABETES MELLITUS
     Route: 058
  4. NOVORAPID [Concomitant]
     Route: 058

REACTIONS (4)
  - DRY MOUTH [None]
  - NAUSEA [None]
  - OFF LABEL USE [None]
  - TINNITUS [None]
